FAERS Safety Report 17118440 (Version 1)
Quarter: 2019Q4

REPORT INFORMATION
  Report Type: Spontaneous
  Country: HR (occurrence: HR)
  Receive Date: 20191205
  Receipt Date: 20191205
  Transmission Date: 20200122
  Serious: Yes (Death)
  Sender: FDA-Public Use
  Company Number: HR-ABBVIE-19K-216-3181244-00

PATIENT
  Age: 63 Year
  Sex: Male

DRUGS (1)
  1. VENETOCLAX. [Suspect]
     Active Substance: VENETOCLAX
     Indication: CHRONIC LYMPHOCYTIC LEUKAEMIA
     Dosage: THE DOSES WERE INCREASED WITHOUT DELAY
     Route: 048
     Dates: start: 20181001

REACTIONS (7)
  - Asthenia [Fatal]
  - Mobility decreased [Fatal]
  - B-cell lymphoma [Fatal]
  - Richter^s syndrome [Fatal]
  - Chronic lymphocytic leukaemia [Fatal]
  - Muscular weakness [Fatal]
  - Decreased appetite [Fatal]

NARRATIVE: CASE EVENT DATE: 20181218
